FAERS Safety Report 4953971-9 (Version None)
Quarter: 2006Q1

REPORT INFORMATION
  Report Type: 
  Country: None (occurrence: None)
  Receive Date: 20060323
  Receipt Date: 20060323
  Transmission Date: 20060701
  Serious: No
  Sender: FDA-Public Use
  Company Number: None

PATIENT
  Age: 22 Year
  Sex: Male

DRUGS (1)
  1. CLOZAPINE [Suspect]
     Indication: SCHIZOPHRENIA
     Dosage: 75 MG PO QHS
     Route: 048

REACTIONS (5)
  - ELECTROCARDIOGRAM ABNORMAL [None]
  - EOSINOPHILIA [None]
  - MYOCARDIAL INFARCTION [None]
  - MYOCARDITIS [None]
  - TACHYCARDIA [None]
